FAERS Safety Report 12575996 (Version 1)
Quarter: 2016Q3

REPORT INFORMATION
  Report Type: Spontaneous
  Country: US (occurrence: US)
  Receive Date: 20160720
  Receipt Date: 20160720
  Transmission Date: 20161109
  Serious: No
  Sender: FDA-Public Use
  Company Number: US-PFIZER INC-2986885

PATIENT
  Age: 2 Year
  Sex: Female

DRUGS (2)
  1. ACETYLCYSTEINE. [Suspect]
     Active Substance: ACETYLCYSTEINE
     Indication: ACCIDENTAL OVERDOSE
     Dosage: UNK
     Route: 041
     Dates: start: 20150822
  2. NORMAL SALINE [Concomitant]
     Active Substance: SODIUM CHLORIDE
     Indication: PRODUCT USED FOR UNKNOWN INDICATION
     Dosage: UNK
     Route: 041
     Dates: start: 20150822

REACTIONS (3)
  - Incorrect route of drug administration [Recovered/Resolved]
  - No adverse event [Unknown]
  - Product label issue [Recovered/Resolved]

NARRATIVE: CASE EVENT DATE: 20150822
